APPROVED DRUG PRODUCT: ESKALITH CR
Active Ingredient: LITHIUM CARBONATE
Strength: 450MG **Federal Register determination that product was not discontinued or withdrawn for safety or effectiveness reasons**
Dosage Form/Route: TABLET, EXTENDED RELEASE;ORAL
Application: N018152 | Product #001
Applicant: JDS PHARMACEUTICALS LLC
Approved: Mar 29, 1982 | RLD: No | RS: No | Type: DISCN